FAERS Safety Report 4585102-1 (Version None)
Quarter: 2005Q1

REPORT INFORMATION
  Report Type: 
  Country: None (occurrence: None)
  Receive Date: 20050214
  Receipt Date: 20050203
  Transmission Date: 20050727
  Serious: Yes (Disabling, Other)
  Sender: FDA-Public Use
  Company Number: 2004071256

PATIENT
  Age: 63 Year
  Sex: Male
  Weight: 124.7392 kg

DRUGS (5)
  1. LIPITOR [Suspect]
     Indication: BLOOD TRIGLYCERIDES INCREASED
     Dosage: 20 MG (20 MG, 1 IN 1 D), ORAL
     Route: 048
     Dates: start: 20031201, end: 20040501
  2. GLIPIZIDE [Concomitant]
  3. ENALAPRIL MALEATE [Concomitant]
  4. METFORMIN HCL [Concomitant]
  5. DIAZEPAM [Concomitant]

REACTIONS (10)
  - ABASIA [None]
  - ASTHENIA [None]
  - DYSGRAPHIA [None]
  - FALL [None]
  - HYPERAESTHESIA [None]
  - IMPAIRED WORK ABILITY [None]
  - MYALGIA [None]
  - PAIN IN EXTREMITY [None]
  - PERIPHERAL SENSORIMOTOR NEUROPATHY [None]
  - SUICIDE ATTEMPT [None]
